FAERS Safety Report 8567657-5 (Version None)
Quarter: 2012Q3

REPORT INFORMATION
  Report Type: 
  Country: None (occurrence: None)
  Receive Date: 20120803
  Receipt Date: 20120725
  Transmission Date: 20120928
  Serious: Yes (Other)
  Sender: FDA-Public Use
  Company Number: GB-ASTRAZENECA-2012SE52725

PATIENT
  Age: 63 Year
  Sex: Male
  Weight: 77 kg

DRUGS (8)
  1. SYMBICORT [Suspect]
     Indication: SLEEP APNOEA SYNDROME
     Dosage: 1 DF TWO TIMES A DAY
     Route: 055
     Dates: start: 20111230
  2. AZITHROMYCIN [Concomitant]
  3. GLUCOSAMINE [Concomitant]
  4. TIOTROPIUM [Concomitant]
  5. MULTI-VITAMIN [Concomitant]
  6. SYMBICORT [Suspect]
     Indication: CHRONIC OBSTRUCTIVE PULMONARY DISEASE
     Dosage: 1 DF TWO TIMES A DAY
     Route: 055
     Dates: start: 20111230
  7. ALBUTEROL SULATE [Concomitant]
  8. MOMETASONE FUROATE [Concomitant]

REACTIONS (2)
  - MUSCLE SPASMS [None]
  - PAIN [None]
